FAERS Safety Report 5772281-3 (Version None)
Quarter: 2008Q2

REPORT INFORMATION
  Report Type: 
  Country: None (occurrence: None)
  Receive Date: 20080613
  Receipt Date: 20080605
  Transmission Date: 20081010
  Serious: Yes (Other)
  Sender: FDA-Public Use
  Company Number: PHHY2008AR09899

PATIENT
  Age: 54 Year
  Sex: Male

DRUGS (2)
  1. DIOVAN [Suspect]
     Indication: HYPERTENSION
     Dosage: 80 MG, QD
     Route: 048
     Dates: start: 20080415
  2. DIOVAN [Suspect]
     Dosage: 80 MG, QD
     Dates: start: 20080530, end: 20080605

REACTIONS (2)
  - APHTHOUS STOMATITIS [None]
  - TONGUE ULCERATION [None]
